FAERS Safety Report 24416689 (Version 1)
Quarter: 2024Q4

REPORT INFORMATION
  Report Type: Spontaneous
  Country: CA (occurrence: CA)
  Receive Date: 20241009
  Receipt Date: 20241009
  Transmission Date: 20250115
  Serious: Yes (Hospitalization, Other)
  Sender: Vantive US Healthcare
  Company Number: CA-VANTIVE-2024VAN019335

PATIENT
  Sex: Female

DRUGS (2)
  1. DIANEAL [Suspect]
     Active Substance: CALCIUM CHLORIDE\DEXTROSE\MAGNESIUM CHLORIDE\SODIUM CHLORIDE\SODIUM LACTATE
     Indication: End stage renal disease
     Dosage: UNK
     Route: 033
     Dates: start: 20211021
  2. EXTRANEAL [Suspect]
     Active Substance: CALCIUM CHLORIDE\ICODEXTRIN\MAGNESIUM CHLORIDE\SODIUM CHLORIDE\SODIUM LACTATE
     Indication: End stage renal disease
     Dosage: UNK
     Route: 033
     Dates: start: 20211021

REACTIONS (4)
  - Urinary tract infection [Recovered/Resolved]
  - Pain [Recovered/Resolved]
  - Peritonitis [Recovered/Resolved]
  - Abdominal pain upper [Recovered/Resolved]
